FAERS Safety Report 6752499-3 (Version None)
Quarter: 2010Q2

REPORT INFORMATION
  Report Type: 
  Country: None (occurrence: None)
  Receive Date: 20100528
  Receipt Date: 20100517
  Transmission Date: 20101027
  Serious: Yes (Other)
  Sender: FDA-Public Use
  Company Number: 7005361

PATIENT
  Age: 58 Year
  Sex: Female
  Weight: 44 kg

DRUGS (3)
  1. REBIF [Suspect]
     Indication: MULTIPLE SCLEROSIS
     Dosage: 22 MCG, 3 IN 1 WK, SUBCUTANEOUS
     Route: 058
     Dates: start: 20050110
  2. UNSPECIFIED BLOOD PRESSURE MEDICATIONS (ANTIHYPERTENSIVES) [Concomitant]
  3. UNSPECIFIED MEDICATIONS (ALL OTHER THERAPEUTIC PRODUCTS) [Concomitant]

REACTIONS (6)
  - AUTONOMIC NERVOUS SYSTEM IMBALANCE [None]
  - BLOOD PRESSURE FLUCTUATION [None]
  - INJECTION SITE DISCOLOURATION [None]
  - LOSS OF CONSCIOUSNESS [None]
  - TACHYCARDIA [None]
  - WEIGHT DECREASED [None]
